FAERS Safety Report 9500395 (Version 1)
Quarter: 2013Q3

REPORT INFORMATION
  Report Type: Spontaneous
  Country: GB (occurrence: GB)
  Receive Date: 20130905
  Receipt Date: 20130905
  Transmission Date: 20140515
  Serious: Yes (Disabling, Other)
  Sender: FDA-Public Use
  Company Number: GB-EISAI INC-E2007-01302-SPO-GB

PATIENT
  Age: 43 Year
  Sex: Male
  Weight: 97 kg

DRUGS (12)
  1. FYCOMPA (PERAMPANEL) [Suspect]
     Indication: PRODUCT USED FOR UNKNOWN INDICATION
     Route: 048
     Dates: start: 20130117, end: 2013
  2. FYCOMPA (PERAMPANEL) [Suspect]
     Route: 048
     Dates: start: 2013
  3. MULTIVITAMIN [Concomitant]
     Indication: PRODUCT USED FOR UNKNOWN INDICATION
     Dosage: UNKOWN
     Route: 048
  4. CHONDROITIN [Concomitant]
     Indication: PRODUCT USED FOR UNKNOWN INDICATION
     Dosage: 600 MG
     Route: 048
  5. ACETAZOLAMIDE [Concomitant]
     Indication: EPILEPSY
     Dosage: UNKNOWN
     Route: 065
     Dates: start: 2009
  6. CALCIUM [Concomitant]
     Indication: PRODUCT USED FOR UNKNOWN INDICATION
     Dosage: 50 MG
     Route: 048
  7. CLOBAZAM [Concomitant]
     Indication: EPILEPSY
     Dates: start: 2004
  8. ESCITALOPRAM [Concomitant]
     Indication: DEPRESSION
     Route: 065
     Dates: start: 2005
  9. ESLICARBAZEPINE [Concomitant]
     Indication: EPILEPSY
     Route: 065
     Dates: start: 2011
  10. ESLICARBAZEPINE [Concomitant]
     Route: 065
  11. FISH OIL [Concomitant]
     Indication: PRODUCT USED FOR UNKNOWN INDICATION
     Dosage: 1000 MG
     Route: 065
  12. GLUCOSAMINE [Concomitant]
     Indication: PRODUCT USED FOR UNKNOWN INDICATION
     Dosage: 750 MG
     Route: 048

REACTIONS (9)
  - Depressed mood [Unknown]
  - Dyscalculia [Not Recovered/Not Resolved]
  - Condition aggravated [Not Recovered/Not Resolved]
  - Epilepsy [Not Recovered/Not Resolved]
  - Dizziness [Not Recovered/Not Resolved]
  - Fall [Not Recovered/Not Resolved]
  - Confusional state [Not Recovered/Not Resolved]
  - Dysarthria [Not Recovered/Not Resolved]
  - Drug ineffective [Unknown]
